FAERS Safety Report 9668243 (Version 2)
Quarter: 2013Q4

REPORT INFORMATION
  Report Type: Spontaneous
  Country: LT (occurrence: LT)
  Receive Date: 20131104
  Receipt Date: 20131213
  Transmission Date: 20140711
  Serious: Yes (Other)
  Sender: FDA-Public Use
  Company Number: LT-ABBVIE-13P-234-1165801-00

PATIENT
  Age: 38 Year
  Sex: Male
  Weight: 103 kg

DRUGS (1)
  1. TARKA [Suspect]
     Indication: PRODUCT USED FOR UNKNOWN INDICATION
     Dosage: 180 MG/2 MG
     Dates: start: 20130823

REACTIONS (3)
  - Extrasystoles [Unknown]
  - Tachycardia [Unknown]
  - Atrial fibrillation [Unknown]
